FAERS Safety Report 16167711 (Version 2)
Quarter: 2019Q3

REPORT INFORMATION
  Report Type: Report from Study
  Country: None (occurrence: US)
  Receive Date: 20190408
  Receipt Date: 20190822
  Transmission Date: 20191004
  Serious: Yes (Hospitalization, Other)
  Sender: FDA-Public Use
  Company Number: US-ABBVIE-19K-163-2734284-00

PATIENT
  Age: 59 Year
  Sex: Male
  Weight: 95.34 kg

DRUGS (5)
  1. HUMIRA [Suspect]
     Active Substance: ADALIMUMAB
     Indication: CROHN^S DISEASE
     Dosage: TOOK TWICE IN ONE MONTH FOR 18 MONTHS
     Route: 058
     Dates: start: 2016
  2. LOTREL [Concomitant]
     Active Substance: AMLODIPINE BESYLATE\BENAZEPRIL HYDROCHLORIDE
     Indication: PRODUCT USED FOR UNKNOWN INDICATION
  3. HUMIRA [Suspect]
     Active Substance: ADALIMUMAB
     Route: 058
  4. TOPROL XL [Concomitant]
     Active Substance: METOPROLOL SUCCINATE
     Indication: PRODUCT USED FOR UNKNOWN INDICATION
  5. FINASTERIDE. [Concomitant]
     Active Substance: FINASTERIDE
     Indication: PRODUCT USED FOR UNKNOWN INDICATION

REACTIONS (30)
  - Mean cell haemoglobin concentration decreased [Unknown]
  - Lymphocyte count decreased [Recovered/Resolved]
  - Drug ineffective [Unknown]
  - Carbon dioxide decreased [Recovered/Resolved]
  - Blood uric acid increased [Recovered/Resolved]
  - Blood iron decreased [Unknown]
  - Iron binding capacity total increased [Unknown]
  - Blood 25-hydroxycholecalciferol decreased [Not Recovered/Not Resolved]
  - Red blood cell sedimentation rate increased [Not Recovered/Not Resolved]
  - Red blood cell count decreased [Recovered/Resolved]
  - Oxygen saturation decreased [Unknown]
  - Blood glucose decreased [Unknown]
  - Eosinophil count increased [Recovered/Resolved]
  - Blood triglycerides increased [Not Recovered/Not Resolved]
  - Serum ferritin increased [Unknown]
  - Haemoglobin decreased [Unknown]
  - Haematocrit decreased [Unknown]
  - Mean cell volume decreased [Unknown]
  - Vitamin B12 increased [Recovered/Resolved]
  - Neutrophil count increased [Recovered/Resolved]
  - Investigation abnormal [Unknown]
  - Gastrointestinal inflammation [Not Recovered/Not Resolved]
  - Basophil count increased [Recovered/Resolved]
  - Blood sodium increased [Recovered/Resolved]
  - High density lipoprotein decreased [Not Recovered/Not Resolved]
  - Blood testosterone decreased [Recovered/Resolved]
  - Vitamin B6 increased [Recovered/Resolved]
  - Urine output increased [Unknown]
  - Anion gap increased [Recovered/Resolved]
  - Blood cholesterol decreased [Not Recovered/Not Resolved]

NARRATIVE: CASE EVENT DATE: 201602
